FAERS Safety Report 12348700 (Version 1)
Quarter: 2016Q2

REPORT INFORMATION
  Report Type: Spontaneous
  Country: FR (occurrence: FR)
  Receive Date: 20160509
  Receipt Date: 20160509
  Transmission Date: 20160815
  Serious: Yes (Other)
  Sender: FDA-Public Use
  Company Number: FR-GLAXOSMITHKLINE-FR2016GSK064972

PATIENT
  Age: 36 Year
  Sex: Female

DRUGS (4)
  1. FLUTICASONE [Suspect]
     Active Substance: FLUTICASONE\FLUTICASONE PROPIONATE
     Indication: ASTHMA
     Route: 055
  2. VORICONAZOLE. [Interacting]
     Active Substance: VORICONAZOLE
     Indication: BRONCHOPULMONARY ASPERGILLOSIS
     Dosage: UNK
     Dates: end: 201508
  3. MONTELUKAST [Concomitant]
     Active Substance: MONTELUKAST SODIUM
  4. BUDESONIDE. [Interacting]
     Active Substance: BUDESONIDE
     Indication: ASTHMA
     Route: 055

REACTIONS (7)
  - Adrenal suppression [Unknown]
  - Drug interaction [Unknown]
  - Blood cortisol increased [Unknown]
  - Asthenia [Unknown]
  - Hypotension [Unknown]
  - Blood corticotrophin decreased [Unknown]
  - Dizziness [Unknown]
